FAERS Safety Report 12713812 (Version 1)
Quarter: 2016Q3

REPORT INFORMATION
  Report Type: Spontaneous
  Country: US (occurrence: US)
  Receive Date: 20160904
  Receipt Date: 20160904
  Transmission Date: 20161109
  Serious: No
  Sender: FDA-Public Use
  Company Number: US-ASTRAZENECA-2016SE84179

PATIENT
  Sex: Female

DRUGS (3)
  1. CRESTOR [Suspect]
     Active Substance: ROSUVASTATIN CALCIUM
     Dosage: GENERIC
     Route: 065
  2. CRESTOR [Suspect]
     Active Substance: ROSUVASTATIN CALCIUM
     Route: 048
  3. CRESTOR [Suspect]
     Active Substance: ROSUVASTATIN CALCIUM
     Route: 048

REACTIONS (6)
  - Dysphagia [Unknown]
  - Back pain [Unknown]
  - Adverse drug reaction [Unknown]
  - Insomnia [Unknown]
  - Spinal pain [Unknown]
  - Chest discomfort [Unknown]
